FAERS Safety Report 5181232-4 (Version None)
Quarter: 2006Q4

REPORT INFORMATION
  Report Type: 
  Country: None (occurrence: None)
  Receive Date: 20061220
  Receipt Date: 20051115
  Transmission Date: 20070319
  Serious: No
  Sender: FDA-Public Use
  Company Number: US-GLAXOSMITHKLINE-A0582270A

PATIENT
  Age: 48 Year
  Sex: Female

DRUGS (4)
  1. COMMIT [Suspect]
     Dates: start: 20051115, end: 20051115
  2. KLONOPIN [Concomitant]
  3. WELLBUTRIN [Concomitant]
  4. DEPAKOTE [Concomitant]

REACTIONS (1)
  - DIARRHOEA [None]
